FAERS Safety Report 9169487 (Version 2)
Quarter: 2013Q3

REPORT INFORMATION
  Report Type: Spontaneous
  Country: GB (occurrence: GB)
  Receive Date: 20130318
  Receipt Date: 20130701
  Transmission Date: 20140515
  Serious: Yes (Other)
  Sender: FDA-Public Use
  Company Number: GB-MYLANLABS-2013S1005224

PATIENT
  Age: 60 Year
  Sex: Female

DRUGS (11)
  1. AMLODIPINE [Suspect]
     Indication: PRODUCT USED FOR UNKNOWN INDICATION
  2. DIAZEPAM [Suspect]
     Indication: PRODUCT USED FOR UNKNOWN INDICATION
  3. SERTRALINE [Suspect]
     Indication: PRODUCT USED FOR UNKNOWN INDICATION
  4. LITHIUM CARBONATE [Suspect]
     Indication: PRODUCT USED FOR UNKNOWN INDICATION
  5. SEROQUEL [Suspect]
     Indication: PRODUCT USED FOR UNKNOWN INDICATION
  6. PARACETAMOL [Suspect]
     Indication: PRODUCT USED FOR UNKNOWN INDICATION
  7. VENTOLIN [Suspect]
     Indication: PRODUCT USED FOR UNKNOWN INDICATION
  8. LEVOTHYROXIN [Suspect]
     Indication: PRODUCT USED FOR UNKNOWN INDICATION
  9. LEVOTHYROXIN [Suspect]
     Indication: PRODUCT USED FOR UNKNOWN INDICATION
  10. ASPIRIN [Suspect]
     Indication: PRODUCT USED FOR UNKNOWN INDICATION
  11. SIMVASTATIN [Concomitant]
     Indication: PRODUCT USED FOR UNKNOWN INDICATION

REACTIONS (8)
  - Tardive dyskinesia [Unknown]
  - Balance disorder [Unknown]
  - Disturbance in attention [Unknown]
  - Swollen tongue [Unknown]
  - Salivary hypersecretion [Unknown]
  - Cough [Unknown]
  - Radial nerve palsy [Unknown]
  - Tremor [Unknown]
